FAERS Safety Report 20728282 (Version 1)
Quarter: 2022Q2

REPORT INFORMATION
  Report Type: Spontaneous
  Country: CA (occurrence: CA)
  Receive Date: 20220420
  Receipt Date: 20220420
  Transmission Date: 20220721
  Serious: Yes (Hospitalization, Other)
  Sender: FDA-Public Use
  Company Number: CA-JNJFOC-20220431270

PATIENT
  Age: 51 Year
  Sex: Female
  Weight: 110 kg

DRUGS (6)
  1. REMICADE [Suspect]
     Active Substance: INFLIXIMAB
     Indication: Crohn^s disease
     Route: 042
  2. ADVIL [Concomitant]
     Active Substance: IBUPROFEN
     Indication: Pain management
     Dosage: EXTENDED- RELEASE
     Route: 048
  3. CLINDAMYCIN [Concomitant]
     Active Substance: CLINDAMYCIN
     Indication: Prophylaxis
     Route: 048
  4. METHOTREXATE [Concomitant]
     Active Substance: METHOTREXATE
     Route: 048
  5. VENLAFAXINE HYDROCHLORIDE [Concomitant]
     Active Substance: VENLAFAXINE HYDROCHLORIDE
     Route: 048
  6. XANAX [Concomitant]
     Active Substance: ALPRAZOLAM
     Route: 048

REACTIONS (18)
  - Haematochezia [Not Recovered/Not Resolved]
  - Anxiety [Not Recovered/Not Resolved]
  - Colitis [Not Recovered/Not Resolved]
  - Illness [Not Recovered/Not Resolved]
  - Migraine [Not Recovered/Not Resolved]
  - Malaise [Not Recovered/Not Resolved]
  - Muscle spasms [Not Recovered/Not Resolved]
  - Vomiting [Not Recovered/Not Resolved]
  - Abdominal pain [Not Recovered/Not Resolved]
  - Abdominal pain upper [Not Recovered/Not Resolved]
  - Condition aggravated [Not Recovered/Not Resolved]
  - Constipation [Not Recovered/Not Resolved]
  - Hypotension [Not Recovered/Not Resolved]
  - Urticaria [Not Recovered/Not Resolved]
  - Nausea [Not Recovered/Not Resolved]
  - Off label use [Not Recovered/Not Resolved]
  - Product dose omission issue [Not Recovered/Not Resolved]
  - Inappropriate schedule of product administration [Not Recovered/Not Resolved]
